FAERS Safety Report 5055843-0 (Version None)
Quarter: 2006Q3

REPORT INFORMATION
  Report Type: 
  Country: None (occurrence: None)
  Receive Date: 20060720
  Receipt Date: 20060711
  Transmission Date: 20061208
  Serious: Yes (Other)
  Sender: FDA-Public Use
  Company Number: PHEH2006US08909

PATIENT
  Sex: Female

DRUGS (2)
  1. EXJADE [Suspect]
     Dosage: 20 MG/KG, QD
     Route: 048
  2. FOSAMAX [Concomitant]

REACTIONS (2)
  - FEMUR FRACTURE [None]
  - OSTEOPOROTIC FRACTURE [None]
